FAERS Safety Report 9279462 (Version 1)
Quarter: 2013Q2

REPORT INFORMATION
  Report Type: Spontaneous
  Country: BR (occurrence: BR)
  Receive Date: 20130508
  Receipt Date: 20130508
  Transmission Date: 20140414
  Serious: Yes (Hospitalization)
  Sender: FDA-Public Use
  Company Number: BR-B.I. PHARMACEUTICALS,INC./RIDGEFIELD-2013-BR-00505BR

PATIENT
  Sex: Male
  Weight: 63 kg

DRUGS (5)
  1. SPIRIVA RESPIMAT [Suspect]
     Indication: EMPHYSEMA
     Dosage: 5 MCG
     Route: 055
     Dates: start: 2010, end: 201212
  2. SERETIDE [Concomitant]
     Indication: EMPHYSEMA
     Dates: start: 201211
  3. LOSARTAN [Concomitant]
     Indication: HYPERTENSION
     Dates: start: 2002
  4. DIGOXINA [Concomitant]
     Indication: CARDIOMEGALY
     Dates: start: 2002
  5. FUROSEMIDA [Concomitant]
     Indication: SWELLING

REACTIONS (5)
  - Asthmatic crisis [Recovered/Resolved]
  - Asthmatic crisis [Recovered/Resolved]
  - Syncope [Recovered/Resolved]
  - Fatigue [Recovered/Resolved]
  - Skin discolouration [Recovered/Resolved]
